FAERS Safety Report 6675530-2 (Version None)
Quarter: 2010Q2

REPORT INFORMATION
  Report Type: 
  Country: None (occurrence: None)
  Receive Date: 20100409
  Receipt Date: 20100402
  Transmission Date: 20101027
  Serious: Yes (Hospitalization, Other)
  Sender: FDA-Public Use
  Company Number: HQWYE398005JAN05

PATIENT
  Sex: Female
  Weight: 97.61 kg

DRUGS (1)
  1. PREMPRO [Suspect]
     Indication: HORMONE REPLACEMENT THERAPY
     Dosage: NOT SPECIFIED
     Route: 048
     Dates: start: 19950101

REACTIONS (2)
  - BENIGN OVARIAN TUMOUR [None]
  - BREAST CANCER [None]
